FAERS Safety Report 11272515 (Version 1)
Quarter: 2015Q3

REPORT INFORMATION
  Report Type: Spontaneous
  Country: US (occurrence: None)
  Receive Date: 20150714
  Receipt Date: 20150714
  Transmission Date: 20151125
  Serious: Yes (Other)
  Sender: FDA-Public Use
  Company Number: None

PATIENT
  Age: 20 Year

DRUGS (1)
  1. NUVARING [Suspect]
     Active Substance: ETHINYL ESTRADIOL\ETONOGESTREL

REACTIONS (6)
  - Vulvovaginal rash [None]
  - Vulvovaginal pain [None]
  - Vulvovaginal swelling [None]
  - Kidney infection [None]
  - Drug hypersensitivity [None]
  - Vaginal discharge [None]

NARRATIVE: CASE EVENT DATE: 20150507
